FAERS Safety Report 4694855-3 (Version None)
Quarter: 2005Q2

REPORT INFORMATION
  Report Type: 
  Country: None (occurrence: None)
  Receive Date: 20050620
  Receipt Date: 20050613
  Transmission Date: 20051028
  Serious: Yes (Death, Other)
  Sender: FDA-Public Use
  Company Number: US-BRISTOL-MYERS SQUIBB COMPANY-13006911

PATIENT
  Age: 45 Year
  Sex: Male

DRUGS (1)
  1. SERZONE [Suspect]
     Route: 048
     Dates: start: 19940101, end: 20020101

REACTIONS (2)
  - HEPATIC NEOPLASM [None]
  - HEPATITIS C [None]
